FAERS Safety Report 5222541-X (Version None)
Quarter: 2007Q1

REPORT INFORMATION
  Report Type: 
  Country: None (occurrence: None)
  Receive Date: 20061201
  Receipt Date: 20060715
  Transmission Date: 20070707
  Serious: No
  Sender: FDA-Public Use
  Company Number: 2006PV017596

PATIENT
  Age: 53 Year
  Sex: Female
  Weight: 108.8633 kg

DRUGS (3)
  1. BYETTA [Suspect]
     Indication: DIABETES MELLITUS NON-INSULIN-DEPENDENT
     Dosage: 5 MCG;BID;SC
     Route: 058
     Dates: start: 20060201
  2. HUMULIN 70/30 [Concomitant]
  3. LANTUS [Concomitant]

REACTIONS (13)
  - ASTHENIA [None]
  - BLOOD GLUCOSE DECREASED [None]
  - CONJUNCTIVITIS [None]
  - DIPLOPIA [None]
  - EYE MOVEMENT DISORDER [None]
  - EYE PAIN [None]
  - HEADACHE [None]
  - HYPERHIDROSIS [None]
  - NAUSEA [None]
  - THYROXINE INCREASED [None]
  - TREMOR [None]
  - VISUAL ACUITY REDUCED [None]
  - VOMITING [None]
